FAERS Safety Report 5934962-8 (Version None)
Quarter: 2008Q4

REPORT INFORMATION
  Report Type: 
  Country: None (occurrence: None)
  Receive Date: 20081028
  Receipt Date: 20081017
  Transmission Date: 20090506
  Serious: Yes (Other)
  Sender: FDA-Public Use
  Company Number: CHPA2008US18183

PATIENT
  Age: 54 Year
  Sex: Female

DRUGS (4)
  1. NICOTINE [Suspect]
     Indication: SMOKING CESSATION THERAPY
     Dosage: TRANSDERMAL
     Route: 062
  2. AMBIEN [Concomitant]
  3. IBUPROFEN [Concomitant]
  4. FEMARA [Concomitant]

REACTIONS (4)
  - BREAST CANCER FEMALE [None]
  - NICOTINE DEPENDENCE [None]
  - PAIN [None]
  - SLEEP DISORDER [None]
